FAERS Safety Report 5135510-5 (Version None)
Quarter: 2006Q4

REPORT INFORMATION
  Report Type: 
  Country: None (occurrence: None)
  Receive Date: 20061024
  Receipt Date: 20061024
  Transmission Date: 20070319
  Serious: Yes (Other)
  Sender: FDA-Public Use
  Company Number: None

PATIENT
  Age: 59 Year
  Sex: Male
  Weight: 99.7913 kg

DRUGS (32)
  1. METOPROLOL SUCCINATE EXTENDED RELEASE [Suspect]
     Indication: HYPERTENSION
     Dosage: 200 MG DAILY
     Dates: start: 20060317, end: 20060710
  2. DILTIAZEM HCL [Suspect]
     Indication: HYPERTENSION
     Dosage: 240 MG BID
     Dates: start: 20060317
  3. CLONIDINE [Suspect]
     Indication: HYPERTENSION
     Dosage: CHANGED FROM 0.3 MG PO TID
     Route: 048
     Dates: start: 20060628
  4. ASPIRIN [Concomitant]
  5. DOCUSATE CALCIUM [Concomitant]
  6. FLOXETINE HCL [Concomitant]
  7. FUROSEMIDE [Concomitant]
  8. ISOSORBIDE MONONITRATE SA [Concomitant]
  9. LOVASTATIN [Concomitant]
  10. RANITIDINE HCL [Concomitant]
  11. VALSARTAN [Concomitant]
  12. ACETAMINOPHEN [Concomitant]
  13. ALOH/MGOH/SIMTH XTRA STRENGTH LIQUID [Concomitant]
  14. PROCHLORPERAZINE MALEATE [Concomitant]
  15. ALBUTEROL SULFATE AND IPRATROPIUM BROMIDE [Concomitant]
  16. INSULIN REG HUMAN (NOVOLIN R) [Concomitant]
  17. MILK OF MAGNESIA SUSP [Concomitant]
  18. MOMETASONE FUROATE INHL [Concomitant]
  19. MORPHINE SULFATE [Concomitant]
  20. NITROGLYCERIN [Concomitant]
  21. NYSTATIN [Concomitant]
  22. SODIUM CHLORIDE [Concomitant]
  23. TEMAZEPAM [Concomitant]
  24. AMITRIPTYLINE HCL [Concomitant]
  25. CLOTRIMAZOLE [Concomitant]
  26. GUAIFENSIN 100MG/5ML [Concomitant]
  27. ANCET, TECHLITE [Concomitant]
  28. MINOXIDIL [Concomitant]
  29. MOMETASONE FUROATE [Concomitant]
  30. PROPOXYPHENE N 100/ APAP 650MG [Concomitant]
  31. VALSARTAN [Concomitant]
  32. ALCOHOL [Concomitant]

REACTIONS (3)
  - BRADYCARDIA [None]
  - DYSPNOEA [None]
  - OEDEMA [None]
